FAERS Safety Report 17092836 (Version 1)
Quarter: 2019Q4

REPORT INFORMATION
  Report Type: Report from Study
  Country: US (occurrence: US)
  Receive Date: 20191129
  Receipt Date: 20191129
  Transmission Date: 20200122
  Serious: Yes (Other)
  Sender: FDA-Public Use
  Company Number: US-PFIZER INC-2019512463

PATIENT

DRUGS (3)
  1. GENTAMICIN. [Concomitant]
     Active Substance: GENTAMICIN
     Indication: NECROTISING ENTEROCOLITIS NEONATAL
     Dosage: UNK
  2. CLINDAMYCIN PHOSPHATE. [Suspect]
     Active Substance: CLINDAMYCIN PHOSPHATE
     Indication: NECROTISING ENTEROCOLITIS NEONATAL
     Dosage: 20 MG/KG, 3X/DAY
  3. AMPICILLIN [Concomitant]
     Active Substance: AMPICILLIN
     Indication: NECROTISING ENTEROCOLITIS NEONATAL
     Dosage: UNK

REACTIONS (1)
  - Intestinal stenosis [Recovered/Resolved]
